FAERS Safety Report 20726858 (Version 7)
Quarter: 2022Q2

REPORT INFORMATION
  Report Type: Report from Study
  Country: CA (occurrence: CA)
  Receive Date: 20220419
  Receipt Date: 20220628
  Transmission Date: 20220720
  Serious: Yes (Other)
  Sender: FDA-Public Use
  Company Number: CA-GILEAD-2022-0567275

PATIENT
  Age: 56 Year
  Sex: Female
  Weight: 62 kg

DRUGS (15)
  1. SACITUZUMAB GOVITECAN [Suspect]
     Active Substance: SACITUZUMAB GOVITECAN
     Indication: Triple negative breast cancer
     Dosage: CYCLE 3, DAY 1
     Route: 042
     Dates: start: 20220321
  2. SACITUZUMAB GOVITECAN [Suspect]
     Active Substance: SACITUZUMAB GOVITECAN
     Dosage: 420 MG, CYCLE 2, DAY 1, 8
     Route: 042
     Dates: start: 20220221
  3. SACITUZUMAB GOVITECAN [Suspect]
     Active Substance: SACITUZUMAB GOVITECAN
     Dosage: 420 MG
     Route: 042
     Dates: start: 20220117, end: 20220124
  4. SACITUZUMAB GOVITECAN [Suspect]
     Active Substance: SACITUZUMAB GOVITECAN
     Dosage: 578 MG
     Route: 065
  5. BENADRYL [Concomitant]
     Active Substance: DIPHENHYDRAMINE HYDROCHLORIDE
     Dosage: (PRE-MEDICATION PRIOR TO TRODELVY)
     Route: 048
  6. TYLENOL [Concomitant]
     Active Substance: ACETAMINOPHEN
     Dosage: 1 G (PRE-MEDICATION PRIOR TO TRODELVY)
     Route: 048
  7. TYLENOL [Concomitant]
     Active Substance: ACETAMINOPHEN
     Dosage: 1 G PO  (PRE-MEDICATION PRIOR TO TRODELVY)
  8. TYLENOL [Concomitant]
     Active Substance: ACETAMINOPHEN
     Dosage: 1 G PO (PRE-MEDICATION PRIOR TO TRODELVY)
  9. TYLENOL [Concomitant]
     Active Substance: ACETAMINOPHEN
     Dosage: 1 G PO (PRE-MEDICATION PRIOR TO TRODELVY)
  10. PEPCID [Concomitant]
     Active Substance: FAMOTIDINE
     Dosage: 20 MG (PRE-MEDICATION PRIOR TO TRODELVY)
     Route: 042
  11. DECADRON [Concomitant]
     Active Substance: DEXAMETHASONE
     Dosage: 20 MG (PRE-MEDICATION PRIOR TO TRODELVY)
     Route: 042
  12. KYTRIL [Concomitant]
     Active Substance: GRANISETRON HYDROCHLORIDE
     Dosage: 1 MG (PRE-MEDICATION PRIOR TO TRODELVY)
     Route: 042
  13. KYTRIL [Concomitant]
     Active Substance: GRANISETRON HYDROCHLORIDE
     Dosage: 1 MG IV(PRE-MEDICATION PRIOR TO TRODELVY)
  14. CAPECITABINE [Concomitant]
     Active Substance: CAPECITABINE
  15. ACETAMINOPHEN [Concomitant]
     Active Substance: ACETAMINOPHEN
     Dosage: 1 G (PRE-MEDICATION PRIOR TO TRODELVY)
     Route: 048

REACTIONS (27)
  - Full blood count decreased [Recovered/Resolved]
  - Neutrophil count decreased [Not Recovered/Not Resolved]
  - Neuropathy peripheral [Unknown]
  - Neuropathy peripheral [Not Recovered/Not Resolved]
  - Neurotoxicity [Not Recovered/Not Resolved]
  - Back pain [Recovered/Resolved]
  - Pain in extremity [Recovered/Resolved]
  - White blood cell count decreased [Unknown]
  - Fatigue [Unknown]
  - Weight increased [Unknown]
  - Fatigue [Recovered/Resolved]
  - Constipation [Recovered/Resolved]
  - Diarrhoea [Recovered/Resolved]
  - Palpitations [Recovered/Resolved]
  - Dizziness [Recovered/Resolved]
  - Gastrooesophageal reflux disease [Recovered/Resolved]
  - Inappropriate schedule of product administration [Unknown]
  - Off label use [Unknown]
  - Heart rate increased [Unknown]
  - Bone pain [Recovered/Resolved]
  - Inappropriate schedule of product administration [Unknown]
  - Weight fluctuation [Unknown]
  - Hypoaesthesia [Unknown]
  - Device infusion issue [Recovered/Resolved]
  - Fatigue [Not Recovered/Not Resolved]
  - Dyspnoea [Not Recovered/Not Resolved]
  - Intentional dose omission [Not Recovered/Not Resolved]

NARRATIVE: CASE EVENT DATE: 20220120
